FAERS Safety Report 6591891-7 (Version None)
Quarter: 2010Q1

REPORT INFORMATION
  Report Type: 
  Country: None (occurrence: None)
  Receive Date: 20100221
  Receipt Date: 20090630
  Transmission Date: 20100710
  Serious: No
  Sender: FDA-Public Use
  Company Number: US-ALLERGAN-0909138US

PATIENT
  Age: 35 Year
  Sex: Female

DRUGS (4)
  1. BOTOX COSMETIC [Suspect]
     Indication: SKIN WRINKLING
     Dosage: UNK, SINGLE
     Route: 030
     Dates: start: 20090611, end: 20090611
  2. BOTOX COSMETIC [Suspect]
     Dosage: UNK, SINGLE
     Route: 030
     Dates: start: 20080101, end: 20080101
  3. BIRTH CONTROL PILL [Concomitant]
  4. ACYCLOVIR [Concomitant]
     Dosage: UNK, PRN

REACTIONS (5)
  - FREQUENT BOWEL MOVEMENTS [None]
  - HEART RATE INCREASED [None]
  - HYPERHIDROSIS [None]
  - MALAISE [None]
  - MUSCLE TWITCHING [None]
